FAERS Safety Report 19899043 (Version 1)
Quarter: 2021Q3

REPORT INFORMATION
  Report Type: Spontaneous
  Country: GB (occurrence: GB)
  Receive Date: 20210930
  Receipt Date: 20210930
  Transmission Date: 20211014
  Serious: Yes (Other)
  Sender: FDA-Public Use
  Company Number: GB-SA-2021SA317331

PATIENT
  Age: 66 Year
  Sex: Female

DRUGS (14)
  1. CHLORPHENAMINE [Concomitant]
     Active Substance: CHLORPHENIRAMINE MALEATE
     Dosage: 10 MG
     Route: 048
     Dates: start: 20160630
  2. OXYCODONE [Concomitant]
     Active Substance: OXYCODONE
     Indication: METASTATIC NEOPLASM
     Dosage: 20 MG, BID
     Route: 048
  3. FLUTICASONE. [Concomitant]
     Active Substance: FLUTICASONE
     Dosage: 50 UG
     Route: 048
  4. OXYNORM [Concomitant]
     Active Substance: OXYCODONE HYDROCHLORIDE
     Indication: METASTATIC NEOPLASM
     Dosage: 10 MG
     Route: 048
  5. PARACETAMOL [Concomitant]
     Active Substance: ACETAMINOPHEN
     Indication: METASTATIC NEOPLASM
     Dosage: 1 G
     Route: 048
  6. VENTOLIN [Concomitant]
     Active Substance: ALBUTEROL SULFATE
     Dosage: 200 UG
     Route: 048
  7. DOCETAXEL. [Suspect]
     Active Substance: DOCETAXEL
     Indication: BREAST CANCER
     Dosage: 108 MG, Q3W
     Route: 042
     Dates: start: 20160721, end: 20161014
  8. TRASTUZUMAB. [Suspect]
     Active Substance: TRASTUZUMAB
     Indication: BREAST CANCER
     Dosage: 578 MG, Q3W
     Route: 042
     Dates: start: 20160630
  9. DENOSUMAB [Concomitant]
     Active Substance: DENOSUMAB
     Dosage: 120 MG
     Route: 058
     Dates: start: 20160520, end: 20200318
  10. DOCETAXEL. [Suspect]
     Active Substance: DOCETAXEL
     Dosage: 140 MG, Q3W
     Route: 042
     Dates: start: 20160630, end: 20160630
  11. DEXAMETHASONE. [Concomitant]
     Active Substance: DEXAMETHASONE
     Dosage: 8 MG
     Route: 048
     Dates: start: 20160629, end: 20161018
  12. PERTUZUMAB. [Suspect]
     Active Substance: PERTUZUMAB
     Indication: BREAST CANCER
     Dosage: 840 MG, Q3W
     Route: 042
     Dates: start: 20160630
  13. CIPROFLOXACIN. [Concomitant]
     Active Substance: CIPROFLOXACIN
     Dosage: 250 MG
     Route: 048
     Dates: start: 20160703
  14. ADCAL D3 [Concomitant]
     Active Substance: CALCIUM CARBONATE\CHOLECALCIFEROL
     Dosage: 1500 UNK
     Route: 048
     Dates: start: 20160520

REACTIONS (1)
  - Escherichia infection [Recovered/Resolved]

NARRATIVE: CASE EVENT DATE: 20210722
